FAERS Safety Report 6460044-5 (Version None)
Quarter: 2009Q4

REPORT INFORMATION
  Report Type: 
  Country: None (occurrence: None)
  Receive Date: 20091129
  Receipt Date: 20091120
  Transmission Date: 20100525
  Serious: Yes (Death)
  Sender: FDA-Public Use
  Company Number: PHHO2009BR14518

PATIENT
  Sex: Male
  Weight: 71 kg

DRUGS (1)
  1. AMN107 AMN+CAP [Suspect]
     Indication: CHRONIC MYELOID LEUKAEMIA
     Dosage: 400 MG BID
     Route: 048
     Dates: start: 20070524

REACTIONS (1)
  - SUDDEN DEATH [None]
